FAERS Safety Report 8399015-0 (Version None)
Quarter: 2012Q2

REPORT INFORMATION
  Report Type: 
  Country: None (occurrence: None)
  Receive Date: 20120531
  Receipt Date: 20120522
  Transmission Date: 20120825
  Serious: Yes (Hospitalization)
  Sender: FDA-Public Use
  Company Number: US-ASTRAZENECA-2010SE61359

PATIENT
  Age: 72 Year
  Sex: Female

DRUGS (2)
  1. ANOTHER MEDICATION [Suspect]
  2. NEXIUM [Suspect]
     Route: 048

REACTIONS (11)
  - THROAT IRRITATION [None]
  - DIABETES MELLITUS [None]
  - PAIN IN EXTREMITY [None]
  - ARTHROPATHY [None]
  - MALAISE [None]
  - CONDITION AGGRAVATED [None]
  - DEAFNESS UNILATERAL [None]
  - INTENTIONAL DRUG MISUSE [None]
  - FALL [None]
  - JOINT INJURY [None]
  - INFECTION [None]
